FAERS Safety Report 25595590 (Version 1)
Quarter: 2025Q3

REPORT INFORMATION
  Report Type: Other
  Country: US (occurrence: US)
  Receive Date: 20250723
  Receipt Date: 20250723
  Transmission Date: 20251021
  Serious: Yes (Other)
  Sender: ALVOGEN
  Company Number: US-ALVOGEN-2025098377

PATIENT
  Sex: Female

DRUGS (7)
  1. DISULFIRAM [Suspect]
     Active Substance: DISULFIRAM
     Indication: Meningioma
     Dates: start: 202207, end: 202309
  2. DISULFIRAM [Suspect]
     Active Substance: DISULFIRAM
     Indication: Meningioma
     Dates: start: 202311
  3. COPPER [Suspect]
     Active Substance: COPPER
     Indication: Meningioma
     Dates: start: 202207, end: 202309
  4. COPPER [Suspect]
     Active Substance: COPPER
     Indication: Meningioma
     Dates: start: 202311
  5. ABEMACICLIB [Suspect]
     Active Substance: ABEMACICLIB
     Indication: Meningioma
     Dates: start: 202107
  6. CHLOROQUINE [Suspect]
     Active Substance: CHLOROQUINE
     Indication: Meningioma
     Dates: start: 2021, end: 202309
  7. CHLOROQUINE [Suspect]
     Active Substance: CHLOROQUINE
     Indication: Meningioma
     Dates: start: 202311

REACTIONS (4)
  - Diplopia [Not Recovered/Not Resolved]
  - Neuralgia [Not Recovered/Not Resolved]
  - Nausea [Unknown]
  - Off label use [Unknown]

NARRATIVE: CASE EVENT DATE: 20230501
